FAERS Safety Report 25538598 (Version 1)
Quarter: 2025Q3

REPORT INFORMATION
  Report Type: Spontaneous
  Country: BR (occurrence: BR)
  Receive Date: 20250710
  Receipt Date: 20250710
  Transmission Date: 20251021
  Serious: Yes (Other)
  Sender: SANDOZ
  Company Number: BR-SANDOZ-SDZ2025BR048061

PATIENT
  Sex: Female

DRUGS (2)
  1. LOSARTAN [Suspect]
     Active Substance: LOSARTAN
     Indication: Product used for unknown indication
     Route: 065
  2. VALSARTAN [Suspect]
     Active Substance: VALSARTAN
     Indication: Product used for unknown indication
     Dosage: 160 MG, BID
     Route: 065

REACTIONS (10)
  - Hypertension [Unknown]
  - Lung neoplasm malignant [Unknown]
  - Cataract [Unknown]
  - Visual impairment [Unknown]
  - Hysterectomy [Unknown]
  - Oophorectomy [Unknown]
  - Cardiac pacemaker insertion [Unknown]
  - Cerebrovascular accident [Unknown]
  - Heart rate decreased [Unknown]
  - Effusion [Unknown]
